FAERS Safety Report 17722784 (Version 1)
Quarter: 2020Q2

REPORT INFORMATION
  Report Type: Spontaneous
  Country: CZ (occurrence: CZ)
  Receive Date: 20200429
  Receipt Date: 20200429
  Transmission Date: 20200714
  Serious: Yes (Life-Threatening, Hospitalization)
  Sender: FDA-Public Use
  Company Number: CZ-ROCHE-2589908

PATIENT
  Age: 66 Year
  Sex: Female
  Weight: 112 kg

DRUGS (4)
  1. MILURIT [Concomitant]
     Active Substance: ALLOPURINOL
     Dosage: 1-0-1
     Route: 048
     Dates: start: 20191031, end: 201911
  2. MILURIT [Concomitant]
     Active Substance: ALLOPURINOL
     Dosage: 1-0-0
     Route: 048
     Dates: start: 201911
  3. HERCEPTIN [Suspect]
     Active Substance: TRASTUZUMAB
     Indication: BREAST CANCER
     Route: 058
     Dates: start: 20190628, end: 20200213
  4. NEBILET [Concomitant]
     Active Substance: NEBIVOLOL
     Dosage: 1-0-0
     Route: 048

REACTIONS (6)
  - Atrial fibrillation [Unknown]
  - Dyspnoea [Recovering/Resolving]
  - Chest pain [Recovering/Resolving]
  - Pleural effusion [Unknown]
  - Pericarditis [Unknown]
  - Fatigue [Recovering/Resolving]

NARRATIVE: CASE EVENT DATE: 20200221
